FAERS Safety Report 7484788-1 (Version None)
Quarter: 2011Q2

REPORT INFORMATION
  Report Type: 
  Country: None (occurrence: None)
  Receive Date: 20110517
  Receipt Date: 20110509
  Transmission Date: 20111010
  Serious: Yes (Other)
  Sender: FDA-Public Use
  Company Number: FR-ROCHE-739513

PATIENT
  Age: 60 Year
  Sex: Female

DRUGS (10)
  1. DIFFU K [Concomitant]
  2. LORAZEPAM [Concomitant]
  3. BEVACIZUMAB [Suspect]
     Indication: GLIOBLASTOMA
     Dosage: FREQUENCY:UNKNOWN. CUMULATIVE DOSE: 3100MG.LAST DOSE PRIOR TO SAE: 21 SEPTEMBER 2010
     Route: 065
     Dates: start: 20100722
  4. TRANXENE [Concomitant]
  5. CALCIDOSE VITAMINE D [Concomitant]
  6. ZOLPIDEM [Concomitant]
  7. PAROXETINE HCL [Concomitant]
  8. MEDROL [Concomitant]
  9. IRINOTECAN HYDROCHLORIDE [Suspect]
     Indication: GLIOBLASTOMA
     Dosage: FREQUENCY:UNKNOWN.CUMULATIVE DOSE:800MG.LAST DOSE PRIOR TO SAE: 2 SEPTEMBER 2010.
     Route: 065
     Dates: start: 20100722
  10. PANTOPRAZOLE [Concomitant]

REACTIONS (2)
  - GENERAL PHYSICAL HEALTH DETERIORATION [None]
  - TUMOUR HAEMORRHAGE [None]
